FAERS Safety Report 18495411 (Version 1)
Quarter: 2020Q4

REPORT INFORMATION
  Report Type: Spontaneous
  Country: US (occurrence: US)
  Receive Date: 20201111
  Receipt Date: 20201111
  Transmission Date: 20210114
  Serious: Yes (Hospitalization)
  Sender: FDA-Public Use
  Company Number: None

PATIENT
  Age: 69 Year
  Sex: Male

DRUGS (1)
  1. DAPTOMYCIN (DAPTOMYCIN 500MG/VIL INJ) [Suspect]
     Active Substance: DAPTOMYCIN
     Indication: OSTEOMYELITIS
     Dosage: ?          OTHER ROUTE:IV?
     Route: 042
     Dates: start: 20200922, end: 20201013

REACTIONS (5)
  - Eosinophilic pneumonia [None]
  - Pleural effusion [None]
  - Pulmonary infarction [None]
  - Respiratory disorder [None]
  - Condition aggravated [None]

NARRATIVE: CASE EVENT DATE: 20201015
